FAERS Safety Report 13360689 (Version 4)
Quarter: 2017Q2

REPORT INFORMATION
  Report Type: Spontaneous
  Country: ES (occurrence: ES)
  Receive Date: 20170322
  Receipt Date: 20170418
  Transmission Date: 20170830
  Serious: Yes (Hospitalization, Other)
  Sender: FDA-Public Use
  Company Number: ES-009507513-1703ESP008222

PATIENT
  Age: 58 Year
  Sex: Male
  Weight: 66.2 kg

DRUGS (7)
  1. MST (MORPHINE SULFATE) [Concomitant]
     Dosage: 20 MG TOTAL DAILY DOSAGE
  2. KEPPRA [Concomitant]
     Active Substance: LEVETIRACETAM
     Dosage: 1000 MG TOTAL DAILY DOSAGE
     Route: 048
  3. PEITEL [Concomitant]
  4. ABSTRAL [Concomitant]
     Active Substance: FENTANYL CITRATE
  5. MAGNESIA [Concomitant]
     Active Substance: MAGNESIUM HYDROXIDE
     Dosage: 1 SACHET, TOTAL DAILY DOSAGE
  6. KEYTRUDA [Suspect]
     Active Substance: PEMBROLIZUMAB
     Indication: MALIGNANT MELANOMA STAGE IV
     Dosage: 2 MG/KG, EVERY THREE WEEKS
     Dates: start: 20160428
  7. NOCTAMID [Concomitant]
     Active Substance: LORMETAZEPAM

REACTIONS (3)
  - Lymphocytic hypophysitis [Not Recovered/Not Resolved]
  - Autoimmune hypothyroidism [Not Recovered/Not Resolved]
  - Fulminant type 1 diabetes mellitus [Not Recovered/Not Resolved]

NARRATIVE: CASE EVENT DATE: 20160724
